FAERS Safety Report 10283397 (Version 1)
Quarter: 2014Q3

REPORT INFORMATION
  Report Type: Spontaneous
  Country: DE (occurrence: None)
  Receive Date: 20140702
  Receipt Date: 20140702
  Transmission Date: 20150326
  Serious: Yes (Death)
  Sender: FDA-Public Use
  Company Number: 2014000003A

PATIENT
  Age: 33 Year
  Sex: Male

DRUGS (8)
  1. 6-MONOCETYLMORPHINE [Concomitant]
     Active Substance: 6-ACETYLMORPHINE
  2. OXYMORPHONE [Concomitant]
     Active Substance: OXYMORPHONE
  3. MORPHINE SULFATE. [Suspect]
     Active Substance: MORPHINE SULFATE
  4. METHAMPHETAMINE [Concomitant]
     Active Substance: METHAMPHETAMINE
  5. NOROXYCODONE [Concomitant]
     Active Substance: OXYCODONE
  6. OXYCODONE HCL [Suspect]
     Active Substance: OXYCODONE HYDROCHLORIDE
  7. AMPHETAMINE [Concomitant]
     Active Substance: AMPHETAMINE
  8. CODEINE [Concomitant]
     Active Substance: CODEINE

REACTIONS (2)
  - Respiratory arrest [None]
  - Asphyxia [None]

NARRATIVE: CASE EVENT DATE: 20140121
